FAERS Safety Report 5640659-4 (Version None)
Quarter: 2008Q1

REPORT INFORMATION
  Report Type: 
  Country: None (occurrence: None)
  Receive Date: 20080227
  Receipt Date: 20080220
  Transmission Date: 20080703
  Serious: Yes (Other)
  Sender: FDA-Public Use
  Company Number: B0509964A

PATIENT
  Age: 64 Year
  Sex: Female

DRUGS (1)
  1. NIQUITIN CQ 4MG LOZENGE [Suspect]
     Indication: DRUG USE FOR UNKNOWN INDICATION
     Dosage: 4LOZ PER DAY
     Route: 002

REACTIONS (2)
  - DEPENDENCE [None]
  - TOOTH LOSS [None]
